FAERS Safety Report 10041691 (Version 1)
Quarter: 2014Q1

REPORT INFORMATION
  Report Type: Spontaneous
  Country: US (occurrence: US)
  Receive Date: 20140327
  Receipt Date: 20140327
  Transmission Date: 20141002
  Serious: No
  Sender: FDA-Public Use
  Company Number: US-PFIZER INC-2014083572

PATIENT
  Age: 35 Year
  Sex: Female
  Weight: 45.35 kg

DRUGS (2)
  1. ADVIL [Suspect]
     Indication: HEADACHE
     Dosage: UNK
     Dates: start: 201403, end: 201403
  2. ADVIL [Suspect]
     Indication: PAIN
     Dosage: 3 CAPSULES TOGETHER
     Dates: start: 201403, end: 201403

REACTIONS (2)
  - Extra dose administered [Unknown]
  - Drug ineffective [Unknown]
